FAERS Safety Report 8078435-8 (Version None)
Quarter: 2012Q1

REPORT INFORMATION
  Report Type: 
  Country: None (occurrence: None)
  Receive Date: 20120127
  Receipt Date: 20110227
  Transmission Date: 20120608
  Serious: No
  Sender: FDA-Public Use
  Company Number: PR-ABBOTT-11P-131-0706335-00

PATIENT
  Sex: Female
  Weight: 77.18 kg

DRUGS (8)
  1. CYMBALTA [Concomitant]
     Indication: FIBROMYALGIA
     Route: 048
  2. CALAN [Concomitant]
     Indication: HYPERTENSION
     Route: 048
  3. MEDROL [Concomitant]
     Indication: ASTHMA
     Route: 048
  4. DOLOGESIC [Concomitant]
     Indication: PAIN
     Dosage: AS INDICATED
     Route: 048
  5. HUMIRA [Suspect]
     Indication: PRODUCT USED FOR UNKNOWN INDICATION
     Route: 058
     Dates: start: 20101012, end: 20110201
  6. TRIAMTERENE AND HYDROCHLOROTHIAZIDE [Concomitant]
     Indication: HYPERTENSION
     Dosage: 37.5/25 MG DAILY
     Route: 048
  7. HYZAAR [Concomitant]
     Indication: HYPERTENSION
     Dosage: 50/12.5 MG DAILY
     Route: 048
  8. METFORMIN HCL [Concomitant]
     Indication: DIABETES MELLITUS
     Route: 048

REACTIONS (4)
  - ALOPECIA [None]
  - INFLUENZA [None]
  - PYREXIA [None]
  - CHAPPED LIPS [None]
